FAERS Safety Report 24223296 (Version 1)
Quarter: 2024Q3

REPORT INFORMATION
  Report Type: Spontaneous
  Country: US (occurrence: US)
  Receive Date: 20240819
  Receipt Date: 20240819
  Transmission Date: 20241017
  Serious: No
  Sender: ANI
  Company Number: US-ANIPHARMA-2023-US-039571

PATIENT
  Age: 72 Year
  Sex: Female
  Weight: 104.33 kg

DRUGS (2)
  1. ANASTROZOLE [Suspect]
     Active Substance: ANASTROZOLE
     Indication: Product used for unknown indication
     Route: 065
     Dates: start: 201909
  2. FASLODEX [Suspect]
     Active Substance: FULVESTRANT
     Dosage: EVERY 4 WEEKS
     Route: 030
     Dates: start: 201909

REACTIONS (2)
  - Fatigue [Unknown]
  - Injection site discomfort [Unknown]

NARRATIVE: CASE EVENT DATE: 20190901
